FAERS Safety Report 6700478-4 (Version None)
Quarter: 2010Q2

REPORT INFORMATION
  Report Type: 
  Country: None (occurrence: None)
  Receive Date: 20100428
  Receipt Date: 20100419
  Transmission Date: 20101027
  Serious: Yes (Hospitalization)
  Sender: FDA-Public Use
  Company Number: GXKR2010US04411

PATIENT
  Age: 67 Year
  Sex: Female
  Weight: 64.5 kg

DRUGS (2)
  1. RAMIPRIL [Suspect]
     Indication: HYPERTENSION
     Dosage: 5 MG/DAY
     Route: 065
  2. ADALIMUMAB [Concomitant]
     Indication: PSORIATIC ARTHROPATHY

REACTIONS (7)
  - CHILLS [None]
  - EXFOLIATIVE RASH [None]
  - FATIGUE [None]
  - PUSTULAR PSORIASIS [None]
  - PYREXIA [None]
  - RASH PRURITIC [None]
  - RASH PUSTULAR [None]
